FAERS Safety Report 8965045 (Version 1)
Quarter: 2012Q4

REPORT INFORMATION
  Report Type: 
  Country: US (occurrence: US)
  Receive Date: 20121213
  Receipt Date: 20121213
  Transmission Date: 20130627
  Serious: No
  Sender: FDA-Public Use
  Company Number: US-BRISTOL-MYERS SQUIBB COMPANY-16324048

PATIENT
  Age: 87 Year
  Sex: Male
  Weight: 79.36 kg

DRUGS (1)
  1. PRAVACHOL [Suspect]
     Indication: BLOOD CHOLESTEROL INCREASED
     Dosage: 4-5 or 6-7 years ago
     Route: 048

REACTIONS (1)
  - Muscle disorder [Unknown]
